FAERS Safety Report 5228695-3 (Version None)
Quarter: 2007Q1

REPORT INFORMATION
  Report Type: 
  Country: None (occurrence: None)
  Receive Date: 20070131
  Receipt Date: 20070119
  Transmission Date: 20070707
  Serious: Yes (Hospitalization)
  Sender: FDA-Public Use
  Company Number: VISP-UK-0607S-0437

PATIENT
  Age: 51 Year
  Sex: Male

DRUGS (15)
  1. VISIPAQUE [Suspect]
     Indication: PERIPHERAL VASCULAR DISORDER
     Dosage: 300 ML, SINGLE DOSE, IV
     Route: 042
     Dates: start: 20051128, end: 20051128
  2. CALCIUM CARBONATE (CALCICHEW) [Concomitant]
  3. SODIUM BICARABONE [Concomitant]
  4. IPRATROPIUM BROMIDE AND ALBUTEROL SODIUM (COMBIVENT) [Concomitant]
  5. PULMICORT [Concomitant]
  6. DARBEPOIETIN ALFA (ARANESP) [Concomitant]
  7. ALPHACALCIDOL [Concomitant]
  8. ZOPICLONE [Concomitant]
  9. ESOMEPRAZOLE MAGNESIUM [Concomitant]
  10. SEVELAMER [Concomitant]
  11. ASPIRIN [Concomitant]
  12. QUININE [Concomitant]
  13. ATORVASTATIN [Concomitant]
  14. VITAMIN SUPPLEMENT (NEPHROVITE) [Concomitant]
  15. FLUOXETINE [Concomitant]

REACTIONS (3)
  - HAEMODIALYSIS [None]
  - SIALOADENITIS [None]
  - THYROIDITIS [None]
